FAERS Safety Report 24564678 (Version 2)
Quarter: 2024Q4

REPORT INFORMATION
  Report Type: Spontaneous
  Country: AT (occurrence: AT)
  Receive Date: 20241030
  Receipt Date: 20241129
  Transmission Date: 20250115
  Serious: Yes (Other)
  Sender: REGENERON
  Company Number: AT-BAYER-2024A137204

PATIENT
  Age: 84 Year
  Sex: Female

DRUGS (1)
  1. EYLEA HD [Suspect]
     Active Substance: AFLIBERCEPT
     Indication: Product used for unknown indication
     Dosage: SOLUTION FOR INJECTION, 114.3 MG/ML
     Route: 031

REACTIONS (1)
  - Intra-ocular injection complication [Unknown]
